FAERS Safety Report 8415444-0 (Version None)
Quarter: 2012Q2

REPORT INFORMATION
  Report Type: 
  Country: None (occurrence: None)
  Receive Date: 20120606
  Receipt Date: 20120601
  Transmission Date: 20120825
  Serious: Yes (Hospitalization, Other)
  Sender: FDA-Public Use
  Company Number: PHHY2011CA76243

PATIENT
  Sex: Female

DRUGS (1)
  1. SANDOSTATIN LAR [Suspect]
     Indication: CARCINOID TUMOUR
     Dosage: 30 MG, QMO
     Route: 030
     Dates: start: 20110621

REACTIONS (6)
  - BLOOD PRESSURE INCREASED [None]
  - LIVER DISORDER [None]
  - OEDEMA [None]
  - RASH MACULO-PAPULAR [None]
  - LACERATION [None]
  - PANCREATIC DISORDER [None]
